FAERS Safety Report 5368630-0 (Version None)
Quarter: 2007Q2

REPORT INFORMATION
  Report Type: 
  Country: None (occurrence: None)
  Receive Date: 20070621
  Receipt Date: 20070621
  Transmission Date: 20071010
  Serious: Yes (Hospitalization)
  Sender: FDA-Public Use
  Company Number: None

PATIENT
  Age: 10 Year
  Sex: Male
  Weight: 44.3 kg

DRUGS (2)
  1. NORDITROPIN NORDIFLEX [Suspect]
     Indication: GROWTH HORMONE DEFICIENCY
     Dosage: 2 MG QD SQ
     Route: 058
     Dates: start: 20030815, end: 20070511
  2. HUMATROPE [Concomitant]

REACTIONS (4)
  - BRAIN MASS [None]
  - GLIOSIS [None]
  - INFLAMMATION [None]
  - NERVOUS SYSTEM DISORDER [None]
